FAERS Safety Report 8540971-5 (Version None)
Quarter: 2012Q3

REPORT INFORMATION
  Report Type: 
  Country: None (occurrence: None)
  Receive Date: 20120726
  Receipt Date: 20110811
  Transmission Date: 20120928
  Serious: No
  Sender: FDA-Public Use
  Company Number: US-ASTRAZENECA-2011SE48420

PATIENT
  Age: 85 Year
  Sex: Female

DRUGS (14)
  1. TOPROL-XL [Concomitant]
     Indication: HYPERTENSION
  2. COLACE [Concomitant]
     Indication: ABNORMAL FAECES
  3. ALPRAZOLAM [Concomitant]
  4. SIMVASTATIN [Concomitant]
     Indication: BLOOD CHOLESTEROL ABNORMAL
  5. SEROQUEL [Suspect]
     Indication: DEMENTIA
     Dosage: 25 MILLIGRAMS IN AM, 25 MILLIGRAMMS IN PM, 50 MILLIGRAMMS AT BEDTIME, TOTAL DAILY DOSE 100 MILLIGRAM
     Route: 048
     Dates: start: 20100101, end: 20110729
  6. VITAMIN D [Concomitant]
  7. CALCIUM [Concomitant]
  8. TYLENOL PM [Concomitant]
     Indication: SLEEP DISORDER
  9. NAMENDA [Concomitant]
  10. SUCRALFATE [Concomitant]
  11. MELATONIN [Concomitant]
     Indication: INSOMNIA
  12. RISPERDAL [Suspect]
     Route: 065
  13. PREVACID [Concomitant]
  14. NITROFURATONIN [Concomitant]
     Indication: URINARY TRACT INFECTION

REACTIONS (6)
  - FEELING ABNORMAL [None]
  - GAIT DISTURBANCE [None]
  - OFF LABEL USE [None]
  - DRUG DOSE OMISSION [None]
  - BELLIGERENCE [None]
  - INSOMNIA [None]
